FAERS Safety Report 5211900-7 (Version None)
Quarter: 2007Q1

REPORT INFORMATION
  Report Type: 
  Country: None (occurrence: None)
  Receive Date: 20070116
  Receipt Date: 20070116
  Transmission Date: 20070707
  Serious: Yes (Other)
  Sender: FDA-Public Use
  Company Number: None

PATIENT
  Sex: Female
  Weight: 46 kg

DRUGS (2)
  1. AVELOX [Suspect]
     Indication: PREOPERATIVE CARE
     Dosage: 400MG DAILY IV
     Route: 042
     Dates: start: 20061229
  2. AVELOX [Suspect]
     Indication: PROPHYLAXIS
     Dosage: 400MG DAILY IV
     Route: 042
     Dates: start: 20061229

REACTIONS (4)
  - INFUSION RELATED REACTION [None]
  - RASH ERYTHEMATOUS [None]
  - RASH PRURITIC [None]
  - SKIN IRRITATION [None]
